FAERS Safety Report 5008769-2 (Version None)
Quarter: 2006Q2

REPORT INFORMATION
  Report Type: 
  Country: None (occurrence: None)
  Receive Date: 20060517
  Receipt Date: 20060516
  Transmission Date: 20061013
  Serious: Yes (Hospitalization)
  Sender: FDA-Public Use
  Company Number: 220499

PATIENT
  Age: 78 Year
  Sex: Male

DRUGS (5)
  1. AVASTIN [Suspect]
     Indication: COLORECTAL CANCER METASTATIC
     Dosage: SEE IMAGE
     Route: 042
     Dates: start: 20050825, end: 20051103
  2. IRINOTECAN HCL [Suspect]
     Indication: COLORECTAL CANCER METASTATIC
     Dosage: 360 MG, Q2W, INTRAVENOUS
     Route: 042
     Dates: start: 20050825, end: 20051201
  3. FLUOROURACIL [Suspect]
     Indication: COLORECTAL CANCER METASTATIC
     Dosage: 800 MG, Q2W, INTRAVENOUS
     Route: 042
     Dates: start: 20050825, end: 20051202
  4. DECADRON SRC [Concomitant]
  5. ZOFRAN [Concomitant]

REACTIONS (1)
  - FEBRILE NEUTROPENIA [None]
